FAERS Safety Report 9458714 (Version 1)
Quarter: 2013Q3

REPORT INFORMATION
  Report Type: Spontaneous
  Country: US (occurrence: None)
  Receive Date: 20130812
  Receipt Date: 20130812
  Transmission Date: 20140515
  Serious: Yes (Hospitalization)
  Sender: FDA-Public Use
  Company Number: SYM-2013-08163

PATIENT
  Age: 33 Year
  Sex: Male

DRUGS (1)
  1. XENAZINE [Suspect]
     Indication: HUNTINGTON^S DISEASE
     Dosage: 25 MG 3 IN 1 D
     Route: 048

REACTIONS (4)
  - Dystonia [None]
  - Lung neoplasm malignant [None]
  - Hepatic cancer [None]
  - Bone cancer [None]
